FAERS Safety Report 10704847 (Version 1)
Quarter: 2014Q4

REPORT INFORMATION
  Report Type: Spontaneous
  Country: US (occurrence: US)
  Receive Date: 20141130
  Receipt Date: 20141130
  Transmission Date: 20150529
  Serious: Yes (Hospitalization, Other)
  Sender: FDA-Public Use
  Company Number: US-APOTEX-2014AP005850

PATIENT
  Age: 19 Year
  Sex: Male

DRUGS (4)
  1. LEVETIRACETAM. [Suspect]
     Active Substance: LEVETIRACETAM
     Dosage: 500 MG, DAILY
     Route: 065
  2. LEVETIRACETAM. [Suspect]
     Active Substance: LEVETIRACETAM
     Dosage: 2000 MG, UNK
     Route: 042
  3. OXCARBAZEPINE. [Concomitant]
     Active Substance: OXCARBAZEPINE
     Indication: COMPLEX PARTIAL SEIZURES
     Dosage: 1200 MG, UNK
     Route: 065
  4. LORAZEPAM. [Concomitant]
     Active Substance: LORAZEPAM
     Indication: COMPLEX PARTIAL SEIZURES
     Dosage: 2 MG, UNK
     Route: 042

REACTIONS (3)
  - Renal injury [Unknown]
  - Blood creatine phosphokinase increased [Recovered/Resolved]
  - Haematuria [Unknown]
